FAERS Safety Report 4512370-4 (Version None)
Quarter: 2004Q4

REPORT INFORMATION
  Report Type: 
  Country: None (occurrence: None)
  Receive Date: 20041124
  Receipt Date: 20041115
  Transmission Date: 20050328
  Serious: Yes (Other)
  Sender: FDA-Public Use
  Company Number: 002#2#2004-00241

PATIENT
  Age: 58 Year
  Sex: Male
  Weight: 78.0187 kg

DRUGS (18)
  1. GLYCOLAX [Suspect]
     Indication: CONSTIPATION
     Dosage: 17 G, 1 IN 1 D, ORAL
     Route: 048
     Dates: start: 20041002, end: 20041008
  2. GLYCOLAX [Suspect]
     Indication: CONSTIPATION
     Dosage: 17 G, 1 IN 1 D, ORAL
     Route: 048
     Dates: start: 20041101
  3. CELECOXIB [Concomitant]
  4. HYDROXYCHLOROQUINE [Concomitant]
  5. PREDNISONE [Concomitant]
  6. LEFLUNOMIDE [Concomitant]
  7. FENTANYL [Concomitant]
  8. ACETYLSALICYLIC ACID [Concomitant]
  9. OMEPRAZOLE [Concomitant]
  10. CLONAZEPAM [Concomitant]
  11. VENLAFAXINE-HYDROCHLORIDE [Concomitant]
  12. ROSUVASTATIN-CALCIUM [Concomitant]
  13. LEVOTHYROXINE SODIUM [Concomitant]
  14. NITROGLYCERIN [Concomitant]
  15. FAMOTIDINE [Concomitant]
  16. AMOXICILLIN [Concomitant]
  17. OMEGA-3-FATTY-ACIDS [Concomitant]
  18. MULTI-VITAMIN [Concomitant]

REACTIONS (6)
  - ABDOMINAL DISTENSION [None]
  - ABDOMINAL PAIN [None]
  - GALLBLADDER DISORDER [None]
  - MELAENA [None]
  - TONGUE DISCOLOURATION [None]
  - VOMITING [None]
